FAERS Safety Report 20150284 (Version 2)
Quarter: 2022Q1

REPORT INFORMATION
  Report Type: Spontaneous
  Country: CA (occurrence: None)
  Receive Date: 20211206
  Receipt Date: 20220323
  Transmission Date: 20220423
  Serious: Yes (Other)
  Sender: FDA-Public Use
  Company Number: CA-ROCHE-2970717

PATIENT
  Age: 38 Year
  Sex: Female

DRUGS (1)
  1. RITUXAN [Suspect]
     Active Substance: RITUXIMAB
     Indication: Product used for unknown indication
     Route: 065
     Dates: start: 201808, end: 20211102

REACTIONS (3)
  - Expanded disability status scale score increased [Unknown]
  - Drug ineffective [Unknown]
  - Disease recurrence [Unknown]

NARRATIVE: CASE EVENT DATE: 20201001
